FAERS Safety Report 6516048-7 (Version None)
Quarter: 2009Q4

REPORT INFORMATION
  Report Type: 
  Country: None (occurrence: None)
  Receive Date: 20091223
  Receipt Date: 20090714
  Transmission Date: 20100525
  Serious: No
  Sender: FDA-Public Use
  Company Number: US-ABBOTT-09P-163-0585601-00

PATIENT
  Sex: Male
  Weight: 72.64 kg

DRUGS (5)
  1. LUPRON DEPOT [Suspect]
     Indication: PROSTATE CANCER
     Dates: start: 20070730, end: 20071030
  2. LUPRON DEPOT [Suspect]
     Dates: start: 20071030, end: 20071030
  3. BCG [Concomitant]
     Indication: DRUG USE FOR UNKNOWN INDICATION
     Dosage: INJECTED INTO BLADDER VIA CATHETER/ HOLD FOR 2 HRS
  4. ATENOLOL [Concomitant]
     Indication: ARRHYTHMIA
  5. MAXZIDE [Concomitant]
     Indication: DRUG USE FOR UNKNOWN INDICATION

REACTIONS (2)
  - GYNAECOMASTIA [None]
  - HOT FLUSH [None]
